FAERS Safety Report 15622033 (Version 5)
Quarter: 2019Q2

REPORT INFORMATION
  Report Type: Spontaneous
  Country: TW (occurrence: TW)
  Receive Date: 20181115
  Receipt Date: 20190625
  Transmission Date: 20190711
  Serious: Yes (Death, Hospitalization, Other)
  Sender: FDA-Public Use
  Company Number: TW-PFIZER INC-2018330093

PATIENT
  Age: 58 Year
  Sex: Male

DRUGS (4)
  1. SUTENT [Suspect]
     Active Substance: SUNITINIB MALATE
     Dosage: 37.5 MG, 1X/DAY
     Route: 048
     Dates: start: 20181016, end: 20181107
  2. SUTENT [Suspect]
     Active Substance: SUNITINIB MALATE
     Dosage: 25 MG, 1X/DAY
     Route: 048
     Dates: start: 20181107
  3. SUTENT [Suspect]
     Active Substance: SUNITINIB MALATE
     Dosage: 37.5 MG, 1X/DAY
  4. SUTENT [Suspect]
     Active Substance: SUNITINIB MALATE
     Indication: GASTROINTESTINAL STROMAL TUMOUR
     Dosage: 37.5 MG, 1X/DAY
     Route: 048
     Dates: start: 20150218, end: 2018

REACTIONS (14)
  - Thrombocytopenia [Recovering/Resolving]
  - Dyspnoea [Recovered/Resolved]
  - Incorrect dose administered [Unknown]
  - Diarrhoea [Not Recovered/Not Resolved]
  - Gastric ulcer [Unknown]
  - Dizziness [Recovered/Resolved]
  - Tumour haemorrhage [Not Recovered/Not Resolved]
  - Palmar-plantar erythrodysaesthesia syndrome [Not Recovered/Not Resolved]
  - Death [Fatal]
  - Anaemia [Recovering/Resolving]
  - Pain [Recovering/Resolving]
  - Gastric haemorrhage [Unknown]
  - Red blood cell count decreased [Recovered/Resolved]
  - Haemoglobin decreased [Recovered/Resolved]

NARRATIVE: CASE EVENT DATE: 2018
